FAERS Safety Report 10020647 (Version 2)
Quarter: 2014Q2

REPORT INFORMATION
  Report Type: Spontaneous
  Country: AR (occurrence: AR)
  Receive Date: 20140319
  Receipt Date: 20140423
  Transmission Date: 20141212
  Serious: Yes (Death, Hospitalization)
  Sender: FDA-Public Use
  Company Number: AR-AMGEN-ARGSP2014019332

PATIENT
  Age: 73 Year
  Sex: Female
  Weight: 65 kg

DRUGS (3)
  1. XGEVA [Suspect]
     Indication: METASTASES TO BONE
     Dosage: 120 MG, QMO
     Route: 058
     Dates: end: 20131209
  2. EXEMESTANE [Concomitant]
     Dosage: UNK
     Dates: start: 201309
  3. EVEROLIMUS [Concomitant]
     Dosage: UNK
     Dates: start: 201309

REACTIONS (4)
  - General physical health deterioration [Unknown]
  - Vomiting [Unknown]
  - Dehydration [Unknown]
  - Hypocalcaemia [Fatal]
